FAERS Safety Report 4796493-0 (Version None)
Quarter: 2005Q4

REPORT INFORMATION
  Report Type: 
  Country: None (occurrence: None)
  Receive Date: 20051006
  Receipt Date: 20051006
  Transmission Date: 20060501
  Serious: Yes (Hospitalization)
  Sender: FDA-Public Use
  Company Number: None

PATIENT
  Age: 69 Year
  Sex: Male

DRUGS (15)
  1. CEFDITOREN [Suspect]
     Indication: PNEUMONIA
     Dates: start: 20041213, end: 20041223
  2. ALLOPURINOL [Concomitant]
  3. WARF [Concomitant]
  4. DIGOXIN [Concomitant]
  5. ECOTRIN [Concomitant]
  6. ENALAPRIL [Concomitant]
  7. ISORDIL [Concomitant]
  8. LASIX [Concomitant]
  9. LIPITOR [Concomitant]
  10. .. [Concomitant]
  11. LOPRESSOR [Concomitant]
  12. PLAVIX [Concomitant]
  13. PROCRIT [Concomitant]
  14. PROVIGIL [Concomitant]
  15. PROZAC [Concomitant]

REACTIONS (3)
  - CLOSTRIDIUM COLITIS [None]
  - DEHYDRATION [None]
  - WEIGHT DECREASED [None]
